FAERS Safety Report 21410017 (Version 1)
Quarter: 2022Q4

REPORT INFORMATION
  Report Type: Spontaneous
  Country: IN (occurrence: IN)
  Receive Date: 20221005
  Receipt Date: 20221005
  Transmission Date: 20230113
  Serious: Yes (Other)
  Sender: FDA-Public Use
  Company Number: IN-CADILA HEALTHCARE LIMITED-IN-ZYDUS-083069

PATIENT

DRUGS (4)
  1. DOXORUBICIN [Suspect]
     Active Substance: DOXORUBICIN
     Indication: Sarcoma
     Dosage: 20 MILLIGRAM/SQ. METER
     Route: 065
  2. IFOSFAMIDE [Suspect]
     Active Substance: IFOSFAMIDE
     Indication: Sarcoma
     Dosage: 2500 MILLIGRAM/SQ. METER
     Route: 065
  3. DACARBAZINE [Suspect]
     Active Substance: DACARBAZINE
     Indication: Sarcoma
     Dosage: 300 MILLIGRAM/SQ. METER
     Route: 065
  4. MESNA [Concomitant]
     Active Substance: MESNA
     Indication: Sarcoma
     Dosage: 2500 MILLIGRAM/SQ. METER
     Route: 065

REACTIONS (1)
  - Radiation pneumonitis [Recovered/Resolved]
